FAERS Safety Report 4432446-X (Version None)
Quarter: 2004Q3

REPORT INFORMATION
  Report Type: 
  Country: None (occurrence: None)
  Receive Date: 20040820
  Receipt Date: 20040805
  Transmission Date: 20050211
  Serious: Yes (Hospitalization)
  Sender: FDA-Public Use
  Company Number: 2004AP03705

PATIENT
  Age: 60 Year
  Sex: Female

DRUGS (4)
  1. IRESSA [Suspect]
     Indication: LUNG ADENOCARCINOMA STAGE IV
     Dosage: 250 MG DAILY PO
     Route: 048
     Dates: start: 20031104, end: 20040528
  2. PANTOSIN [Concomitant]
  3. FLAVITAN [Concomitant]
  4. PACLITAXEL [Concomitant]

REACTIONS (8)
  - EROSIVE OESOPHAGITIS [None]
  - FLUID INTAKE REDUCED [None]
  - HAEMATEMESIS [None]
  - MENINGITIS [None]
  - MONOPLEGIA [None]
  - MUSCULOSKELETAL STIFFNESS [None]
  - NAUSEA [None]
  - VOMITING [None]
